FAERS Safety Report 9090693 (Version 1)
Quarter: 2013Q1

REPORT INFORMATION
  Report Type: Report from Study
  Country: US (occurrence: US)
  Receive Date: 20130201
  Receipt Date: 20130201
  Transmission Date: 20140127
  Serious: No
  Sender: FDA-Public Use
  Company Number: US-ABBOTT-12P-163-1018883-00

PATIENT
  Age: 38 Year
  Sex: Female

DRUGS (3)
  1. HUMIRA [Suspect]
     Indication: CROHN^S DISEASE
     Route: 058
     Dates: start: 20121003
  2. 6-MP [Concomitant]
     Indication: CROHN^S DISEASE
     Route: 048
  3. QUESTRAN [Concomitant]
     Indication: CROHN^S DISEASE
     Dosage: POWDER MIX
     Route: 048

REACTIONS (1)
  - Injection site pain [Recovered/Resolved]
